FAERS Safety Report 18016130 (Version 1)
Quarter: 2020Q3

REPORT INFORMATION
  Report Type: Report from Study
  Country: US (occurrence: US)
  Receive Date: 20200713
  Receipt Date: 20200713
  Transmission Date: 20201103
  Serious: Yes (Hospitalization, Other)
  Sender: FDA-Public Use
  Company Number: US-SHIRE-US202009384

PATIENT
  Age: 16 Year
  Sex: Male

DRUGS (1)
  1. ELAPRASE [Suspect]
     Active Substance: IDURSULFASE
     Indication: MUCOPOLYSACCHARIDOSIS II
     Dosage: 11 DOSAGE FORM, 1X/WEEK
     Route: 042
     Dates: start: 20081024

REACTIONS (2)
  - Device related infection [Recovering/Resolving]
  - Intracranial pressure increased [Unknown]

NARRATIVE: CASE EVENT DATE: 20200430
